FAERS Safety Report 14389795 (Version 3)
Quarter: 2018Q1

REPORT INFORMATION
  Report Type: Report from Study
  Country: US (occurrence: US)
  Receive Date: 20180115
  Receipt Date: 20180320
  Transmission Date: 20180509
  Serious: Yes (Hospitalization, Other)
  Sender: FDA-Public Use
  Company Number: PHEH2018US000932

PATIENT
  Sex: Male

DRUGS (2)
  1. ENTRESTO [Suspect]
     Active Substance: SACUBITRIL\VALSARTAN
     Indication: PRODUCT USED FOR UNKNOWN INDICATION
     Route: 048
  2. EPLERENONE. [Concomitant]
     Active Substance: EPLERENONE
     Indication: PRODUCT USED FOR UNKNOWN INDICATION
     Route: 065

REACTIONS (11)
  - Cough [Unknown]
  - Renal failure [Unknown]
  - Dyspnoea [Unknown]
  - Decreased appetite [Unknown]
  - Oedema [Unknown]
  - General physical health deterioration [Unknown]
  - Diabetes mellitus [Unknown]
  - Movement disorder [Unknown]
  - Weight increased [Unknown]
  - Insomnia [Unknown]
  - Weight decreased [Unknown]
